FAERS Safety Report 21993099 (Version 1)
Quarter: 2023Q1

REPORT INFORMATION
  Report Type: Spontaneous
  Country: None (occurrence: US)
  Receive Date: 20230215
  Receipt Date: 20230215
  Transmission Date: 20230417
  Serious: No
  Sender: FDA-Public Use
  Company Number: US-ITALFARMACO SPA-2137964

PATIENT
  Age: 19 Year
  Sex: Female

DRUGS (1)
  1. TIGLUTIK [Suspect]
     Active Substance: RILUZOLE
     Indication: Ataxia
     Route: 048
     Dates: start: 20211210

REACTIONS (2)
  - Off label use [Unknown]
  - Nausea [None]
